FAERS Safety Report 5653082-3 (Version None)
Quarter: 2008Q1

REPORT INFORMATION
  Report Type: 
  Country: None (occurrence: None)
  Receive Date: 20080306
  Receipt Date: 20080228
  Transmission Date: 20080703
  Serious: Yes (Death, Other)
  Sender: FDA-Public Use
  Company Number: PHBS2008US02874

PATIENT
  Age: 23 Year
  Sex: Male

DRUGS (4)
  1. CYCLOSPORINE [Suspect]
     Indication: LIVER TRANSPLANT
     Route: 065
  2. AZATHIOPRINE [Concomitant]
     Indication: LIVER TRANSPLANT
     Route: 065
  3. PREDNISOLONE [Concomitant]
     Indication: LIVER TRANSPLANT
     Route: 065
  4. CEFOTAXIME [Concomitant]

REACTIONS (5)
  - CYTOMEGALOVIRUS HEPATITIS [None]
  - GASTROINTESTINAL HAEMORRHAGE [None]
  - LIVER TRANSPLANT REJECTION [None]
  - PULMONARY EMBOLISM [None]
  - RENAL FAILURE [None]
